FAERS Safety Report 14776747 (Version 1)
Quarter: 2018Q2

REPORT INFORMATION
  Report Type: Spontaneous
  Country: US (occurrence: US)
  Receive Date: 20180419
  Receipt Date: 20180419
  Transmission Date: 20180711
  Serious: Yes (Hospitalization)
  Sender: FDA-Public Use
  Company Number: PHHY2018US062371

PATIENT
  Age: 16 Year
  Sex: Male

DRUGS (3)
  1. VINCRISTINE [Suspect]
     Active Substance: VINCRISTINE
     Indication: B PRECURSOR TYPE ACUTE LEUKAEMIA
     Route: 065
  2. DAUNORUBICIN [Suspect]
     Active Substance: DAUNORUBICIN
     Indication: B PRECURSOR TYPE ACUTE LEUKAEMIA
     Route: 065
  3. PREDNISONE. [Suspect]
     Active Substance: PREDNISONE
     Indication: B PRECURSOR TYPE ACUTE LEUKAEMIA
     Route: 065

REACTIONS (9)
  - Polyuria [Unknown]
  - Product use in unapproved indication [Unknown]
  - Polydipsia [Unknown]
  - Fatigue [Unknown]
  - Hyperkalaemia [Unknown]
  - Hyperglycaemic hyperosmolar nonketotic syndrome [Unknown]
  - Lethargy [Unknown]
  - Weight decreased [Unknown]
  - Dry mouth [Unknown]
